FAERS Safety Report 10678055 (Version 1)
Quarter: 2014Q4

REPORT INFORMATION
  Report Type: Spontaneous
  Country: GB (occurrence: GB)
  Receive Date: 20141229
  Receipt Date: 20141229
  Transmission Date: 20150529
  Serious: Yes (Other)
  Sender: FDA-Public Use
  Company Number: GB-ELI_LILLY_AND_COMPANY-GB201412007082

PATIENT
  Age: 71 Year
  Sex: Female
  Weight: 64.41 kg

DRUGS (4)
  1. CALCICHEW D3 [Concomitant]
     Active Substance: CALCIUM\CHOLECALCIFEROL
     Dosage: UNK
  2. YENTREVE [Suspect]
     Active Substance: DULOXETINE HYDROCHLORIDE
     Dosage: 40 MG, QD
     Route: 048
     Dates: start: 20141117, end: 20141123
  3. YENTREVE [Suspect]
     Active Substance: DULOXETINE HYDROCHLORIDE
     Indication: STRESS URINARY INCONTINENCE
     Dosage: 40 MG, BID
     Route: 048
     Dates: start: 20141110, end: 20141116
  4. OESTROGEL [Concomitant]
     Active Substance: ESTRADIOL
     Dosage: UNK

REACTIONS (7)
  - Weight decreased [Recovering/Resolving]
  - Dyshidrotic eczema [Recovering/Resolving]
  - Fatigue [Recovered/Resolved]
  - Lymphadenopathy [Recovering/Resolving]
  - Food aversion [Recovered/Resolved]
  - Coordination abnormal [Recovered/Resolved]
  - Nausea [Recovered/Resolved]

NARRATIVE: CASE EVENT DATE: 20141110
